FAERS Safety Report 7041573-2 (Version None)
Quarter: 2010Q4

REPORT INFORMATION
  Report Type: 
  Country: None (occurrence: None)
  Receive Date: 20101013
  Receipt Date: 20100224
  Transmission Date: 20110411
  Serious: No
  Sender: FDA-Public Use
  Company Number: US-ASTRAZENECA-2010SE08124

PATIENT
  Age: 604 Month
  Sex: Female
  Weight: 54.4 kg

DRUGS (4)
  1. SYMBICORT [Suspect]
     Indication: COUGH
     Dosage: 2 PUFFS TWICE
     Route: 055
     Dates: start: 20100101
  2. SYMBICORT [Suspect]
     Indication: WHEEZING
     Dosage: 2 PUFFS TWICE
     Route: 055
     Dates: start: 20100101
  3. SYMBICORT [Suspect]
     Indication: DYSPNOEA
     Dosage: 2 PUFFS TWICE
     Route: 055
     Dates: start: 20100101
  4. SYMBICORT [Suspect]
     Indication: LUNG INFECTION
     Dosage: 2 PUFFS TWICE
     Route: 055
     Dates: start: 20100101

REACTIONS (2)
  - DRY EYE [None]
  - EYE PAIN [None]
